FAERS Safety Report 19591708 (Version 1)
Quarter: 2021Q3

REPORT INFORMATION
  Report Type: Spontaneous
  Country: US (occurrence: US)
  Receive Date: 20210721
  Receipt Date: 20210721
  Transmission Date: 20211014
  Serious: No
  Sender: FDA-Public Use
  Company Number: US-ASTRAZENECA-2021A619562

PATIENT
  Age: 227 Month
  Sex: Male
  Weight: 86.6 kg

DRUGS (2)
  1. PULMICORT RESPULES [Suspect]
     Active Substance: BUDESONIDE
     Indication: ASTHMA
     Dosage: AS REQUIRED
     Route: 055
  2. PULMICORT FLEXHALER [Suspect]
     Active Substance: BUDESONIDE
     Indication: ASTHMA
     Route: 055
     Dates: start: 2021

REACTIONS (3)
  - Intentional device use issue [Unknown]
  - Device delivery system issue [Unknown]
  - Asthma [Unknown]

NARRATIVE: CASE EVENT DATE: 202107
